FAERS Safety Report 20469607 (Version 1)
Quarter: 2022Q1

REPORT INFORMATION
  Report Type: Report from Study
  Country: US (occurrence: US)
  Receive Date: 20220214
  Receipt Date: 20220214
  Transmission Date: 20220423
  Serious: No
  Sender: FDA-Public Use
  Company Number: US-PHARMACOVIGILANCE-US-KAD-21-00304

PATIENT

DRUGS (2)
  1. REZUROCK [Suspect]
     Active Substance: BELUMOSUDIL
     Indication: Product used for unknown indication
     Dosage: 200 MILLIGRAM, QD
     Dates: start: 20210818
  2. POTASSIUM [Concomitant]
     Active Substance: POTASSIUM
     Indication: Muscle spasms
     Dosage: 2 MILLIGRAM

REACTIONS (3)
  - Depressed mood [Unknown]
  - Blood potassium decreased [Unknown]
  - Product dose omission issue [Unknown]
